FAERS Safety Report 9271507 (Version 1)
Quarter: 2013Q2

REPORT INFORMATION
  Report Type: Report from Study
  Country: CA (occurrence: CA)
  Receive Date: 20130506
  Receipt Date: 20130506
  Transmission Date: 20140414
  Serious: Yes (Hospitalization)
  Sender: FDA-Public Use
  Company Number: CA-JNJFOC-20130417303

PATIENT
  Age: 50 Year
  Sex: Male
  Weight: 106 kg

DRUGS (6)
  1. REMICADE [Suspect]
     Indication: COLITIS ULCERATIVE
     Route: 042
     Dates: start: 20121109
  2. REMICADE [Suspect]
     Indication: COLITIS ULCERATIVE
     Route: 042
     Dates: start: 20130326
  3. SALOFALK [Concomitant]
     Route: 065
     Dates: start: 20121025
  4. SOLU MEDROL [Concomitant]
     Route: 042
     Dates: start: 20130423
  5. VERAPAMIL [Concomitant]
     Route: 048
  6. PROPAFENONE [Concomitant]
     Route: 048

REACTIONS (2)
  - Diarrhoea [Recovering/Resolving]
  - Haemorrhage [Recovering/Resolving]
